FAERS Safety Report 5075988-9 (Version None)
Quarter: 2006Q3

REPORT INFORMATION
  Report Type: 
  Country: None (occurrence: None)
  Receive Date: 20060714
  Receipt Date: 20060504
  Transmission Date: 20061208
  Serious: No
  Sender: FDA-Public Use
  Company Number: 2006SP002191

PATIENT
  Age: 66 Year
  Sex: Male
  Weight: 65.7716 kg

DRUGS (1)
  1. LUNESTA [Suspect]
     Indication: INSOMNIA
     Dosage: 2 MG;HS;ORAL
     Route: 048
     Dates: start: 20060426, end: 20060426

REACTIONS (4)
  - BEDRIDDEN [None]
  - MALAISE [None]
  - NAUSEA [None]
  - VERTIGO [None]
